FAERS Safety Report 4399363-5 (Version None)
Quarter: 2004Q3

REPORT INFORMATION
  Report Type: 
  Country: None (occurrence: None)
  Receive Date: 20040712
  Receipt Date: 20040629
  Transmission Date: 20050211
  Serious: Yes (Death, Hospitalization, Other)
  Sender: FDA-Public Use
  Company Number: 2004043111

PATIENT
  Age: 16 Year
  Sex: Female

DRUGS (2)
  1. ZOLOFT [Suspect]
     Indication: DEPRESSION
  2. QUETIAPINE FUMARATE (QUETIAPINE FUMARATE) [Suspect]
     Indication: ILL-DEFINED DISORDER

REACTIONS (12)
  - ABNORMAL BEHAVIOUR [None]
  - AFFECT LABILITY [None]
  - AFFECTIVE DISORDER [None]
  - ANXIETY [None]
  - BORDERLINE PERSONALITY DISORDER [None]
  - COMPLETED SUICIDE [None]
  - FORMICATION [None]
  - HALLUCINATION, AUDITORY [None]
  - HEART RATE INCREASED [None]
  - IRRITABILITY [None]
  - MIDDLE INSOMNIA [None]
  - SUICIDAL IDEATION [None]
